FAERS Safety Report 15824888 (Version 1)
Quarter: 2019Q1

REPORT INFORMATION
  Report Type: Spontaneous
  Country: AR (occurrence: AR)
  Receive Date: 20190115
  Receipt Date: 20190115
  Transmission Date: 20190417
  Serious: Yes (Other)
  Sender: FDA-Public Use
  Company Number: AR-AMGEN-ARGSP2019004914

PATIENT
  Age: 75 Year
  Sex: Female

DRUGS (1)
  1. ENBREL [Suspect]
     Active Substance: ETANERCEPT
     Indication: RHEUMATOID ARTHRITIS
     Dosage: 50 MG, WEEKLY
     Route: 065
     Dates: start: 20101018, end: 201811

REACTIONS (6)
  - Pruritus [Unknown]
  - Burning sensation [Unknown]
  - Brain hypoxia [Unknown]
  - Pain [Unknown]
  - Respiratory disorder [Unknown]
  - Urticaria [Unknown]

NARRATIVE: CASE EVENT DATE: 201811
